FAERS Safety Report 8245866-2 (Version None)
Quarter: 2012Q1

REPORT INFORMATION
  Report Type: 
  Country: None (occurrence: None)
  Receive Date: 20120328
  Receipt Date: 20120328
  Transmission Date: 20120608
  Serious: Yes (Hospitalization)
  Sender: FDA-Public Use
  Company Number: None

PATIENT
  Sex: Female
  Weight: 46.7 kg

DRUGS (5)
  1. ACTEMRA [Suspect]
     Dosage: 375MG Q 2 WKS SUBCUTANEOUS  3 INFUSIONS
     Route: 058
     Dates: start: 20120101, end: 20120201
  2. METHOTREXATE [Concomitant]
  3. FOLIC ACID [Concomitant]
  4. RILONACEPT 1.2ML (220MG VIAL) GIVEN 2.2MG/KG NIAMS-NO1-AR-7-0015 [Suspect]
     Indication: JUVENILE ARTHRITIS
     Dosage: 1.2ML Q WEEK SUBCUTANEOUS
     Route: 058
     Dates: start: 20100628, end: 20120101
  5. MOBIC [Concomitant]

REACTIONS (6)
  - LETHARGY [None]
  - CHEST PAIN [None]
  - HODGKIN'S DISEASE [None]
  - DECREASED APPETITE [None]
  - SOMNOLENCE [None]
  - PAIN IN EXTREMITY [None]
